FAERS Safety Report 9799973 (Version 1)
Quarter: 2014Q1

REPORT INFORMATION
  Report Type: Spontaneous
  Country: US (occurrence: US)
  Receive Date: 20140106
  Receipt Date: 20140106
  Transmission Date: 20141002
  Serious: Yes (Hospitalization)
  Sender: FDA-Public Use
  Company Number: US-GILEAD-2010-0030359

PATIENT
  Age: 54 Year
  Sex: Female

DRUGS (20)
  1. LETAIRIS [Suspect]
     Indication: PULMONARY ARTERIAL HYPERTENSION
     Route: 048
     Dates: start: 20100615, end: 20100620
  2. FUROSEMIDE [Concomitant]
  3. ALBUTEROL [Concomitant]
  4. SYMBICORT [Concomitant]
  5. HUMALOG [Concomitant]
  6. NOVOLOG [Concomitant]
  7. METFORMIN [Concomitant]
  8. OMEGA-3 [Concomitant]
  9. POTASSIUM [Concomitant]
  10. LIPITOR [Concomitant]
  11. ASPIRIN [Concomitant]
  12. FEXOFENADINE [Concomitant]
  13. REQUIP [Concomitant]
  14. TOPROL XL [Concomitant]
  15. FENOFIBRATE [Concomitant]
  16. PLAVIX [Concomitant]
  17. GLIMEPIRIDE [Concomitant]
  18. ZOLOFT [Concomitant]
  19. IMDUR [Concomitant]
  20. LYRICA [Concomitant]

REACTIONS (3)
  - Oedema peripheral [Recovering/Resolving]
  - Dyspnoea [Recovering/Resolving]
  - Weight increased [Unknown]
